FAERS Safety Report 6032285-2 (Version None)
Quarter: 2009Q1

REPORT INFORMATION
  Report Type: 
  Country: None (occurrence: None)
  Receive Date: 20090107
  Receipt Date: 20081224
  Transmission Date: 20090719
  Serious: Yes (Hospitalization)
  Sender: FDA-Public Use
  Company Number: 2008003353

PATIENT
  Age: 78 Year
  Sex: Female
  Weight: 121.3 kg

DRUGS (5)
  1. ERLOTINIB (TABLET) [Suspect]
     Indication: PANCREATIC CARCINOMA
     Dosage: (150 MG, QD), ORAL
     Route: 048
     Dates: start: 20080111
  2. OLMESARTAN (OLMESARTAN) [Concomitant]
  3. ASPIRIN [Concomitant]
  4. PANTOPRAZOLE SODIUM [Concomitant]
  5. CARVEDILOL [Concomitant]

REACTIONS (2)
  - BLOOD PRESSURE INCREASED [None]
  - CHEST DISCOMFORT [None]
